FAERS Safety Report 5856919-8 (Version None)
Quarter: 2008Q3

REPORT INFORMATION
  Report Type: 
  Country: None (occurrence: None)
  Receive Date: 20080821
  Receipt Date: 20080821
  Transmission Date: 20090109
  Serious: Yes (Other)
  Sender: FDA-Public Use
  Company Number: None

PATIENT
  Sex: Male

DRUGS (2)
  1. DIVALPROEX SODIUM [Suspect]
     Indication: CONVULSION
     Dosage: 250MG IN AM AND 2 TABS PM PO
     Route: 048
     Dates: start: 20080809
  2. DIVALPROEX SODIUM [Suspect]
     Indication: CONVULSION
     Dosage: 125MG DAILY IN AM PO
     Route: 048
     Dates: start: 20080811

REACTIONS (2)
  - CONVULSION [None]
  - THERAPEUTIC RESPONSE UNEXPECTED WITH DRUG SUBSTITUTION [None]
